FAERS Safety Report 14993571 (Version 1)
Quarter: 2018Q2

REPORT INFORMATION
  Report Type: Spontaneous
  Country: FR (occurrence: FR)
  Receive Date: 20180611
  Receipt Date: 20180611
  Transmission Date: 20180711
  Serious: Yes (Hospitalization)
  Sender: FDA-Public Use
  Company Number: FR-AUROBINDO-AUR-APL-2018-030481

PATIENT
  Age: 38 Year
  Sex: Male

DRUGS (6)
  1. ZOPICLONE [Suspect]
     Active Substance: ZOPICLONE
     Indication: TOXICITY TO VARIOUS AGENTS
     Dosage: 14 DOSAGE FORM, TOTAL
     Route: 048
     Dates: start: 20180428, end: 20180428
  2. SERESTA [Suspect]
     Active Substance: OXAZEPAM
     Indication: TOXICITY TO VARIOUS AGENTS
     Dosage: 20 MILLIGRAM, ONCE A DAY
     Route: 048
     Dates: start: 20180428, end: 20180428
  3. CANNABIS [Suspect]
     Active Substance: CANNABIS SATIVA SUBSP. INDICA TOP
     Indication: DRUG ABUSE
     Dosage: QUELQUES JOINTS
     Route: 055
  4. LEVOTHYROX [Suspect]
     Active Substance: LEVOTHYROXINE
     Indication: TOXICITY TO VARIOUS AGENTS
     Dosage: 12 DOSAGE FORM, TOTAL
     Route: 048
     Dates: start: 20180428, end: 20180428
  5. VENLAFAXINE [Suspect]
     Active Substance: VENLAFAXINE HYDROCHLORIDE
     Indication: TOXICITY TO VARIOUS AGENTS
     Dosage: 562.5 MILLIGRAM, TOTAL, 15 CP
     Route: 048
     Dates: start: 20180428, end: 20180428
  6. ALCOHOL. [Suspect]
     Active Substance: ALCOHOL
     Indication: ALCOHOL USE
     Dosage: NON RENSEIGN?E
     Route: 048
     Dates: start: 20180428

REACTIONS (4)
  - Vomiting [Recovered/Resolved]
  - Somnolence [Recovered/Resolved]
  - Drug abuse [Recovering/Resolving]
  - Toxicity to various agents [Recovered/Resolved]

NARRATIVE: CASE EVENT DATE: 20180428
